FAERS Safety Report 8215402-5 (Version None)
Quarter: 2012Q1

REPORT INFORMATION
  Report Type: 
  Country: None (occurrence: None)
  Receive Date: 20120316
  Receipt Date: 20120309
  Transmission Date: 20120608
  Serious: Yes (Hospitalization)
  Sender: FDA-Public Use
  Company Number: US-AMGEN-USASP2012013487

PATIENT
  Sex: Female

DRUGS (3)
  1. SORIATANE [Concomitant]
     Dosage: UNK
  2. ENBREL [Suspect]
     Indication: PSORIATIC ARTHROPATHY
     Dosage: 50 MG, QWK
     Dates: start: 20110101
  3. METHOTREXATE [Concomitant]
     Dosage: UNK

REACTIONS (2)
  - SWELLING [None]
  - PSORIASIS [None]
